FAERS Safety Report 14459510 (Version 3)
Quarter: 2018Q3

REPORT INFORMATION
  Report Type: Report from Study
  Country: NL (occurrence: NL)
  Receive Date: 20180130
  Receipt Date: 20180703
  Transmission Date: 20181010
  Serious: Yes (Hospitalization, Other)
  Sender: FDA-Public Use
  Company Number: NL-AMGEN-NLDSL2018010574

PATIENT
  Age: 42 Year
  Sex: Female

DRUGS (2)
  1. XGEVA [Suspect]
     Active Substance: DENOSUMAB
     Indication: BREAST CANCER
  2. XGEVA [Suspect]
     Active Substance: DENOSUMAB
     Indication: PROPHYLAXIS
     Dosage: 120 MG/ 1.70 ML, Q4WK
     Route: 058
     Dates: start: 20180123

REACTIONS (2)
  - Staphylococcal infection [Unknown]
  - Infectious pleural effusion [Unknown]

NARRATIVE: CASE EVENT DATE: 20180123
